FAERS Safety Report 4875039-2 (Version None)
Quarter: 2006Q1

REPORT INFORMATION
  Report Type: 
  Country: None (occurrence: None)
  Receive Date: 20060104
  Receipt Date: 20051221
  Transmission Date: 20060701
  Serious: Yes (Hospitalization)
  Sender: FDA-Public Use
  Company Number: 12560

PATIENT
  Age: 81 Year
  Sex: Male

DRUGS (16)
  1. PACLITAXEL [Suspect]
     Indication: NON-SMALL CELL LUNG CANCER
     Dosage: 330 MG/KG DAILY IV
     Route: 042
     Dates: start: 20050915, end: 20050915
  2. CARBOPLATIN [Suspect]
     Dosage: 330 MG/KG DAILY IV
     Route: 042
     Dates: start: 20050915, end: 20050915
  3. DEXAMETHASONE TAB [Concomitant]
  4. RANITIDINE [Concomitant]
  5. TROPISETRON [Concomitant]
  6. PROMETHAZINE HCL [Concomitant]
  7. COLOXYL WITH SENNA [Concomitant]
  8. MOVICOL [Concomitant]
  9. ESOMEPRAZOLE [Concomitant]
  10. METOCLOPRAMIDE [Concomitant]
  11. PARACETAMOL [Concomitant]
  12. LANSOPRAZOLE [Concomitant]
  13. CLOPIDOGREL [Concomitant]
  14. DILTIAZEM HCL [Concomitant]
  15. IRBESARTAN AND HYDROCHLOROTHIAZIDE [Concomitant]
  16. DOMPERIDONE [Concomitant]

REACTIONS (5)
  - CONSTIPATION [None]
  - FEBRILE NEUTROPENIA [None]
  - GENERAL PHYSICAL HEALTH DETERIORATION [None]
  - HAEMOGLOBIN DECREASED [None]
  - HAEMORRHAGE [None]
